FAERS Safety Report 8618795-X (Version None)
Quarter: 2012Q3

REPORT INFORMATION
  Report Type: 
  Country: None (occurrence: None)
  Receive Date: 20120824
  Receipt Date: 20120810
  Transmission Date: 20120928
  Serious: Yes (Other)
  Sender: FDA-Public Use
  Company Number: US-SANOFI-AVENTIS-2012SA058014

PATIENT
  Age: 82 Year
  Sex: Female

DRUGS (5)
  1. AMLODIPINE [Concomitant]
  2. PLAVIX [Suspect]
     Route: 048
     Dates: start: 19960101
  3. METOPROLOL TARTRATE [Concomitant]
  4. FISH OIL [Concomitant]
  5. MULTI-VITAMINS [Concomitant]

REACTIONS (4)
  - SPINAL DISORDER [None]
  - GAIT DISTURBANCE [None]
  - HAEMATOMA [None]
  - NERVE INJURY [None]
